FAERS Safety Report 19542008 (Version 1)
Quarter: 2021Q3

REPORT INFORMATION
  Report Type: Spontaneous
  Country: LU (occurrence: LU)
  Receive Date: 20210714
  Receipt Date: 20210714
  Transmission Date: 20211014
  Serious: Yes (Hospitalization)
  Sender: FDA-Public Use
  Company Number: LU-TEVA-2021-LU-1931251

PATIENT
  Age: 43 Year
  Sex: Male
  Weight: 74 kg

DRUGS (2)
  1. PARACETAMOL 1 G [Concomitant]
     Active Substance: ACETAMINOPHEN
     Indication: MIGRAINE
  2. IBUPROFENE 400 MG [Suspect]
     Active Substance: IBUPROFEN
     Indication: MIGRAINE

REACTIONS (7)
  - Abdominal pain [Recovered/Resolved]
  - Abdominal pain upper [Not Recovered/Not Resolved]
  - Fatigue [Not Recovered/Not Resolved]
  - Abdominal pain [Not Recovered/Not Resolved]
  - Myalgia [Not Recovered/Not Resolved]
  - Pancreatitis [Recovering/Resolving]
  - Nausea [Recovered/Resolved]

NARRATIVE: CASE EVENT DATE: 20210309
